FAERS Safety Report 10926637 (Version 1)
Quarter: 2015Q1

REPORT INFORMATION
  Report Type: Spontaneous
  Country: US (occurrence: None)
  Receive Date: 20150316
  Receipt Date: 20150316
  Transmission Date: 20150721
  Serious: Yes (Death)
  Sender: FDA-Public Use
  Company Number: 2784494

PATIENT
  Age: 29 Year
  Sex: Female

DRUGS (5)
  1. CEFTRIAXONE SODIUM. [Suspect]
     Active Substance: CEFTRIAXONE SODIUM
     Indication: PYREXIA
  2. METHYLPREDNISOLONE. [Suspect]
     Active Substance: METHYLPREDNISOLONE
     Indication: PRODUCT USED FOR UNKNOWN INDICATION
  3. IVERMECTIN. [Suspect]
     Active Substance: IVERMECTIN
     Indication: STRONGYLOIDIASIS
  4. PREDNISONE. [Suspect]
     Active Substance: PREDNISONE
     Indication: PYREXIA
  5. DOXYCYCLINE. [Suspect]
     Active Substance: DOXYCYCLINE
     Indication: PYREXIA

REACTIONS (5)
  - Stevens-Johnson syndrome [None]
  - Toxic epidermal necrolysis [None]
  - Pseudomonal sepsis [None]
  - Drug reaction with eosinophilia and systemic symptoms [None]
  - Strongyloidiasis [None]
